FAERS Safety Report 5590544-1 (Version None)
Quarter: 2008Q1

REPORT INFORMATION
  Report Type: 
  Country: None (occurrence: None)
  Receive Date: 20080114
  Receipt Date: 20071220
  Transmission Date: 20080703
  Serious: No
  Sender: FDA-Public Use
  Company Number: US-BOEHRINGER INGELHEIM PHARMACEUTICALS, INC.-2007-BP-26689BP

PATIENT
  Sex: Male

DRUGS (1)
  1. FLOMAX [Suspect]

REACTIONS (2)
  - DRY MOUTH [None]
  - EYE IRRITATION [None]
